FAERS Safety Report 14284202 (Version 1)
Quarter: 2017Q4

REPORT INFORMATION
  Report Type: Report from Study
  Country: CA (occurrence: CA)
  Receive Date: 20171214
  Receipt Date: 20171214
  Transmission Date: 20180321
  Serious: Yes (Other)
  Sender: FDA-Public Use
  Company Number: CA-JNJFOC-20171213622

PATIENT
  Age: 15 Year
  Sex: Male
  Weight: 57.5 kg

DRUGS (2)
  1. PENCILLIN [Suspect]
     Active Substance: PENICILLIN
     Indication: STAPHYLOCOCCAL INFECTION
     Route: 065
     Dates: start: 201712
  2. REMICADE [Suspect]
     Active Substance: INFLIXIMAB
     Indication: CROHN^S DISEASE
     Route: 042
     Dates: start: 20161004

REACTIONS (2)
  - Staphylococcal infection [Recovered/Resolved]
  - Diarrhoea [Recovered/Resolved]

NARRATIVE: CASE EVENT DATE: 20171204
